FAERS Safety Report 18706464 (Version 1)
Quarter: 2021Q1

REPORT INFORMATION
  Report Type: Spontaneous
  Country: US (occurrence: US)
  Receive Date: 20210105
  Receipt Date: 20210105
  Transmission Date: 20210419
  Serious: No
  Sender: FDA-Public Use
  Company Number: None

PATIENT
  Age: 78 Year
  Sex: Male

DRUGS (1)
  1. IXEKIZUMAB (IXEKIZUMAB 80MG/ML AUTO INJECTOR) [Suspect]
     Active Substance: IXEKIZUMAB
     Dosage: FREQUENCY: OTHER
     Route: 058
     Dates: start: 20200717, end: 20200915

REACTIONS (1)
  - Constipation [None]

NARRATIVE: CASE EVENT DATE: 20200915
